FAERS Safety Report 13395099 (Version 5)
Quarter: 2024Q1

REPORT INFORMATION
  Report Type: Report from Study
  Country: FR (occurrence: FR)
  Receive Date: 20170403
  Receipt Date: 20240215
  Transmission Date: 20240409
  Serious: Yes (Hospitalization)
  Sender: FDA-Public Use
  Company Number: FR-ABBVIE-17P-056-1924660-00

PATIENT
  Age: 24 Year
  Sex: Male
  Weight: 74 kg

DRUGS (8)
  1. ADALIMUMAB [Suspect]
     Active Substance: ADALIMUMAB\ISOPROPYL ALCOHOL
     Indication: Colitis ulcerative
     Dosage: ONCE (FIRST DOSE)
     Route: 058
     Dates: start: 20161019, end: 20161019
  2. ADALIMUMAB [Suspect]
     Active Substance: ADALIMUMAB\ISOPROPYL ALCOHOL
     Dosage: ONCE (SECOND DOSE)
     Route: 058
     Dates: start: 20161102, end: 20161102
  3. ADALIMUMAB [Suspect]
     Active Substance: ADALIMUMAB\ISOPROPYL ALCOHOL
     Route: 058
     Dates: start: 201611, end: 201611
  4. ADALIMUMAB [Suspect]
     Active Substance: ADALIMUMAB\ISOPROPYL ALCOHOL
     Route: 058
     Dates: start: 201611, end: 201611
  5. ADALIMUMAB [Suspect]
     Active Substance: ADALIMUMAB\ISOPROPYL ALCOHOL
     Route: 058
     Dates: start: 201611, end: 20161116
  6. AZATHIOPRINE [Concomitant]
     Active Substance: AZATHIOPRINE
     Indication: Colitis ulcerative
     Route: 048
     Dates: start: 2011
  7. PREDNISONE [Concomitant]
     Active Substance: PREDNISONE
     Indication: Colitis ulcerative
     Dosage: FREQUENCY TEXT: 1
     Route: 048
     Dates: start: 20161012
  8. PENTASA [Concomitant]
     Active Substance: MESALAMINE
     Indication: Colitis ulcerative
     Dosage: FREQUENCY TEXT: 2
     Route: 048
     Dates: start: 20160606

REACTIONS (2)
  - Colitis [Recovered/Resolved with Sequelae]
  - Therapeutic product effect decreased [Unknown]

NARRATIVE: CASE EVENT DATE: 20161108
